FAERS Safety Report 7488051-4 (Version None)
Quarter: 2011Q2

REPORT INFORMATION
  Report Type: 
  Country: None (occurrence: None)
  Receive Date: 20110518
  Receipt Date: 20110513
  Transmission Date: 20111010
  Serious: No
  Sender: FDA-Public Use
  Company Number: US-PFIZER INC-2011103653

PATIENT
  Sex: Male
  Weight: 99.773 kg

DRUGS (1)
  1. ADVIL [Suspect]
     Indication: MIGRAINE
     Dosage: UNK
     Dates: start: 20110501

REACTIONS (1)
  - DRUG INEFFECTIVE [None]
